FAERS Safety Report 20963766 (Version 2)
Quarter: 2022Q2

REPORT INFORMATION
  Report Type: Spontaneous
  Country: CN (occurrence: CN)
  Receive Date: 20220615
  Receipt Date: 20220615
  Transmission Date: 20220720
  Serious: Yes (Life-Threatening, Other)
  Sender: FDA-Public Use
  Company Number: CN-PFIZER INC-202200811723

PATIENT
  Age: 50 Year
  Sex: Female

DRUGS (12)
  1. METHOTREXATE [Suspect]
     Active Substance: METHOTREXATE
     Indication: Central nervous system lymphoma
     Dosage: UNK UNK, CYCLIC 3.5 G/M2  6 CYCLES (HIGH-DOSE)
  2. METHOTREXATE [Suspect]
     Active Substance: METHOTREXATE
     Indication: Angiocentric lymphoma
     Dosage: 15 MG, CYCLIC, FOR FIRST TWO CYCLES
     Route: 037
  3. CYTARABINE [Suspect]
     Active Substance: CYTARABINE
     Indication: Central nervous system lymphoma
     Dosage: 50 MG, CYCLIC, FOR FISRT TWO CYCLES
  4. CYTARABINE [Suspect]
     Active Substance: CYTARABINE
     Indication: Angiocentric lymphoma
  5. PEGASPARGASE [Suspect]
     Active Substance: PEGASPARGASE
     Indication: Central nervous system lymphoma
     Dosage: UNK UNK, CYCLIC, 2000 IU/M2 FOR 6 CYCLES
  6. PEGASPARGASE [Suspect]
     Active Substance: PEGASPARGASE
     Indication: Angiocentric lymphoma
  7. THIOTEPA [Suspect]
     Active Substance: THIOTEPA
     Indication: Central nervous system lymphoma
     Dosage: 30 MG, CYCLIC FOR 6 CYCLES
  8. THIOTEPA [Suspect]
     Active Substance: THIOTEPA
     Indication: Angiocentric lymphoma
  9. SINTILIMAB [Suspect]
     Active Substance: SINTILIMAB
     Indication: Central nervous system lymphoma
     Dosage: 200 MG, CYCLIC FOR 6 CYCLES
  10. SINTILIMAB [Suspect]
     Active Substance: SINTILIMAB
     Indication: Angiocentric lymphoma
  11. DEXAMETHASONE [Suspect]
     Active Substance: DEXAMETHASONE
     Indication: Central nervous system lymphoma
     Dosage: 5 MG, CYCLIC FOR FIRST TWO CYCLES
  12. DEXAMETHASONE [Suspect]
     Active Substance: DEXAMETHASONE
     Indication: Angiocentric lymphoma

REACTIONS (4)
  - Thrombocytopenia [Unknown]
  - Haematotoxicity [Unknown]
  - Anaemia [Unknown]
  - Neutropenia [Unknown]
